FAERS Safety Report 24584546 (Version 1)
Quarter: 2024Q4

REPORT INFORMATION
  Report Type: Spontaneous
  Country: CA (occurrence: CA)
  Receive Date: 20241106
  Receipt Date: 20241106
  Transmission Date: 20250115
  Serious: Yes (Hospitalization)
  Sender: PFIZER
  Company Number: CA-PFIZER INC-202400293447

PATIENT
  Age: 64 Year
  Sex: Male
  Weight: 75 kg

DRUGS (18)
  1. IDARUBICIN HYDROCHLORIDE [Suspect]
     Active Substance: IDARUBICIN HYDROCHLORIDE
     Indication: Acute myeloid leukaemia
     Dosage: 24 MG
  2. CYTARABINE [Suspect]
     Active Substance: CYTARABINE
     Indication: Acute myeloid leukaemia
     Dosage: 390 MG
  3. ALLOPURINOL [Concomitant]
     Active Substance: ALLOPURINOL
  4. AMLODIPINE [Concomitant]
     Active Substance: AMLODIPINE BESYLATE
     Route: 065
  5. ATORVASTATIN CALCIUM [Concomitant]
     Active Substance: ATORVASTATIN CALCIUM
     Route: 065
  6. DEXAMETHASONE [Concomitant]
     Active Substance: DEXAMETHASONE
     Route: 065
  7. DIPHENHYDRAMINE [Concomitant]
     Active Substance: DIPHENHYDRAMINE
  8. GLICLAZIDE [Concomitant]
     Active Substance: GLICLAZIDE
  9. GRANISETRON [Concomitant]
     Active Substance: GRANISETRON
  10. INDAPAMIDE [Concomitant]
     Active Substance: INDAPAMIDE
  11. LISINOPRIL [Concomitant]
     Active Substance: LISINOPRIL
  12. LORAZEPAM [Concomitant]
     Active Substance: LORAZEPAM
     Route: 065
  13. METFORMIN [Concomitant]
     Active Substance: METFORMIN HYDROCHLORIDE
  14. METOCLOPRAMIDE [Concomitant]
     Active Substance: METOCLOPRAMIDE
  15. OLANZAPINE [Concomitant]
     Active Substance: OLANZAPINE
  16. PROCHLORPERAZINE [Concomitant]
     Active Substance: PROCHLORPERAZINE
  17. VITAMIN B12 [Concomitant]
     Active Substance: CYANOCOBALAMIN
  18. DULAGLUTIDE [Concomitant]
     Active Substance: DULAGLUTIDE

REACTIONS (2)
  - Febrile neutropenia [Recovered/Resolved]
  - Pneumonia fungal [Recovered/Resolved]
